FAERS Safety Report 15486023 (Version 2)
Quarter: 2018Q4

REPORT INFORMATION
  Report Type: Spontaneous
  Country: US (occurrence: US)
  Receive Date: 20181011
  Receipt Date: 20181210
  Transmission Date: 20190205
  Serious: Yes (Other)
  Sender: FDA-Public Use
  Company Number: PHEH2018US041985

PATIENT
  Sex: Male
  Weight: 79.37 kg

DRUGS (2)
  1. COSENTYX [Suspect]
     Active Substance: SECUKINUMAB
     Indication: PSORIASIS
     Dosage: 300 MG, QMO
     Route: 058
     Dates: start: 20171214, end: 201809
  2. COSENTYX [Suspect]
     Active Substance: SECUKINUMAB
     Indication: PSORIATIC ARTHROPATHY

REACTIONS (6)
  - Scrotal ulcer [Recovering/Resolving]
  - Mucocutaneous ulceration [Recovered/Resolved]
  - Pharyngeal oedema [Recovered/Resolved]
  - Headache [Recovered/Resolved]
  - Genital lesion [Recovering/Resolving]
  - Swelling [Recovering/Resolving]
